FAERS Safety Report 15887928 (Version 1)
Quarter: 2019Q1

REPORT INFORMATION
  Report Type: Spontaneous
  Country: CN (occurrence: CN)
  Receive Date: 20190130
  Receipt Date: 20190130
  Transmission Date: 20190417
  Serious: Yes (Hospitalization, Other)
  Sender: FDA-Public Use
  Company Number: CN-ROCHE-2250076

PATIENT
  Age: 31 Year
  Sex: Male

DRUGS (5)
  1. CICLOSPORIN [Concomitant]
     Active Substance: CYCLOSPORINE
     Indication: RENAL TRANSPLANT
  2. CYCLOSPORINE. [Concomitant]
     Active Substance: CYCLOSPORINE
  3. TACROLIMUS. [Concomitant]
     Active Substance: TACROLIMUS
     Indication: RENAL TRANSPLANT
  4. PREDNISONE. [Concomitant]
     Active Substance: PREDNISONE
     Indication: RENAL TRANSPLANT
     Route: 065
  5. CELLCEPT [Suspect]
     Active Substance: MYCOPHENOLATE MOFETIL\MYCOPHENOLATE MOFETIL HYDROCHLORIDE
     Indication: RENAL TRANSPLANT
     Route: 065

REACTIONS (9)
  - Glomerulonephritis proliferative [Unknown]
  - Blood creatinine increased [Unknown]
  - Lymphadenopathy [Unknown]
  - Lung infection [Recovered/Resolved]
  - Hypoproteinaemia [Unknown]
  - Pyrexia [Unknown]
  - Post transplant lymphoproliferative disorder [Unknown]
  - Generalised oedema [Unknown]
  - Proteinuria [Unknown]

NARRATIVE: CASE EVENT DATE: 201307
